FAERS Safety Report 13008198 (Version 2)
Quarter: 2024Q4

REPORT INFORMATION
  Report Type: Spontaneous
  Country: RO (occurrence: RO)
  Receive Date: 20161208
  Receipt Date: 20241019
  Transmission Date: 20250115
  Serious: Yes (Life-Threatening, Hospitalization)
  Sender: ACCORD
  Company Number: RO-MLMSERVICE-20161111-0341460-1

PATIENT
  Age: 48 Year
  Sex: Male

DRUGS (1)
  1. CAPECITABINE [Suspect]
     Active Substance: CAPECITABINE
     Indication: Gastrointestinal carcinoma

REACTIONS (1)
  - Cardiogenic shock [Recovered/Resolved]
